FAERS Safety Report 21554762 (Version 1)
Quarter: 2022Q4

REPORT INFORMATION
  Report Type: Spontaneous
  Country: US (occurrence: US)
  Receive Date: 20221104
  Receipt Date: 20221104
  Transmission Date: 20230113
  Serious: No
  Sender: FDA-Public Use
  Company Number: US-PFIZER INC-202201275111

PATIENT

DRUGS (2)
  1. PAXLOVID [Suspect]
     Active Substance: NIRMATRELVIR\RITONAVIR
     Indication: COVID-19 treatment
     Dosage: UNK
     Dates: start: 20221101
  2. LEVOTHYROXINE [Concomitant]
     Active Substance: LEVOTHYROXINE
     Indication: Autoimmune thyroiditis
     Dosage: 25 MG (25 MICROGRAM)

REACTIONS (4)
  - Ear congestion [Unknown]
  - Ear pain [Unknown]
  - Hypoacusis [Unknown]
  - Body temperature abnormal [Unknown]
